FAERS Safety Report 16185251 (Version 1)
Quarter: 2019Q2

REPORT INFORMATION
  Report Type: Spontaneous
  Country: US (occurrence: US)
  Receive Date: 20190411
  Receipt Date: 20190411
  Transmission Date: 20190711
  Serious: No
  Sender: FDA-Public Use
  Company Number: US-ABBVIE-19K-163-2690301-00

PATIENT

DRUGS (1)
  1. VENETOCLAX. [Suspect]
     Active Substance: VENETOCLAX
     Indication: PROLYMPHOCYTIC LEUKAEMIA
     Dosage: 1 WEEK
     Route: 048

REACTIONS (1)
  - Intentional product use issue [Unknown]
